FAERS Safety Report 23338613 (Version 2)
Quarter: 2024Q1

REPORT INFORMATION
  Report Type: Spontaneous
  Country: US (occurrence: US)
  Receive Date: 20231226
  Receipt Date: 20240117
  Transmission Date: 20240410
  Serious: No
  Sender: FDA-Public Use
  Company Number: US-OPELLA-2023OHG019140

PATIENT
  Age: 39 Year

DRUGS (3)
  1. ICY HOT ADVANCED RELIEF NOS [Suspect]
     Active Substance: CAMPHOR (SYNTHETIC)\MENTHOL OR MENTHOL
     Indication: Back pain
  2. ICY HOT ADVANCED RELIEF NOS [Suspect]
     Active Substance: CAMPHOR (SYNTHETIC)\MENTHOL OR MENTHOL
     Indication: Arthralgia
  3. ICY HOT ADVANCED RELIEF NOS [Suspect]
     Active Substance: CAMPHOR (SYNTHETIC)\MENTHOL OR MENTHOL
     Indication: Pain in extremity

REACTIONS (1)
  - Application site burn [Unknown]
